FAERS Safety Report 4513355-4 (Version None)
Quarter: 2004Q4

REPORT INFORMATION
  Report Type: 
  Country: None (occurrence: None)
  Receive Date: 20041130
  Receipt Date: 20040818
  Transmission Date: 20050328
  Serious: Yes (Other)
  Sender: FDA-Public Use
  Company Number: US-BRISTOL-MYERS SQUIBB COMPANY-12678579

PATIENT
  Age: 48 Year
  Sex: Female

DRUGS (5)
  1. ERBITUX [Suspect]
     Indication: ADENOCARCINOMA
     Route: 042
     Dates: start: 20040610, end: 20040610
  2. DOCETAXEL [Concomitant]
     Dates: start: 20040610, end: 20040610
  3. CISPLATIN [Concomitant]
     Dates: start: 20040610, end: 20040610
  4. LEXAPRO [Concomitant]
  5. STRATTERA [Concomitant]
     Indication: ATTENTION DEFICIT/HYPERACTIVITY DISORDER

REACTIONS (2)
  - BRONCHOSPASM [None]
  - RASH [None]
